FAERS Safety Report 7937217-5 (Version None)
Quarter: 2011Q4

REPORT INFORMATION
  Report Type: 
  Country: None (occurrence: None)
  Receive Date: 20111123
  Receipt Date: 20111103
  Transmission Date: 20120403
  Serious: Yes (Other)
  Sender: FDA-Public Use
  Company Number: US-VIIV HEALTHCARE LIMITED-A0954214A

PATIENT
  Sex: Male

DRUGS (1)
  1. AZT [Suspect]
     Route: 065

REACTIONS (1)
  - SUICIDAL IDEATION [None]
